FAERS Safety Report 8576656-9 (Version None)
Quarter: 2012Q3

REPORT INFORMATION
  Report Type: 
  Country: None (occurrence: None)
  Receive Date: 20120807
  Receipt Date: 20120731
  Transmission Date: 20120928
  Serious: Yes (Hospitalization)
  Sender: FDA-Public Use
  Company Number: JP-PFIZER INC-2012076316

PATIENT
  Age: 51 Year
  Sex: Female
  Weight: 64 kg

DRUGS (8)
  1. GOREI-SAN [Concomitant]
     Dosage: 2.5 G, 3X/DAY
     Route: 048
  2. TEMSIROLIMUS [Suspect]
     Dosage: 15 MG, WEEKLY
     Route: 042
     Dates: start: 20120313
  3. TEMSIROLIMUS [Suspect]
     Dosage: 15 MG, WEEKLY
     Route: 042
  4. TEMSIROLIMUS [Suspect]
     Dosage: 15 MG, WEEKLY
     Route: 042
     Dates: start: 20120307
  5. TEMSIROLIMUS [Suspect]
     Indication: NEOPLASM MALIGNANT
     Dosage: 25 MG, UNK
     Route: 042
     Dates: start: 20120224
  6. TEMSIROLIMUS [Suspect]
     Dosage: 20 MG, UNK
  7. TEMSIROLIMUS [Suspect]
     Dosage: 15 MG, WEEKLY
     Route: 042
     Dates: start: 20120301
  8. LASIX [Concomitant]
     Dosage: 20 MG, 2X/DAY
     Route: 048

REACTIONS (2)
  - WEIGHT INCREASED [None]
  - OEDEMA [None]
